FAERS Safety Report 5758707-X (Version None)
Quarter: 2008Q2

REPORT INFORMATION
  Report Type: 
  Country: None (occurrence: None)
  Receive Date: 20080603
  Receipt Date: 20080603
  Transmission Date: 20081010
  Serious: No
  Sender: FDA-Public Use
  Company Number: None

PATIENT
  Age: 64 Year
  Sex: Male
  Weight: 65.7716 kg

DRUGS (1)
  1. SIMVASTATIN [Suspect]
     Dosage: 40MG 1 DAY PO
     Route: 048

REACTIONS (2)
  - BLOOD CHOLESTEROL INCREASED [None]
  - PHARMACEUTICAL PRODUCT COMPLAINT [None]
